FAERS Safety Report 24432612 (Version 1)
Quarter: 2024Q4

REPORT INFORMATION
  Report Type: Spontaneous
  Country: US (occurrence: US)
  Receive Date: 20241014
  Receipt Date: 20241014
  Transmission Date: 20250115
  Serious: Yes (Hospitalization)
  Sender: BRISTOL-MYERS SQUIBB COMPANY
  Company Number: US-BRISTOL-MYERS SQUIBB COMPANY-2024-160323

PATIENT
  Age: 60 Year
  Sex: Female
  Weight: 99.79 kg

DRUGS (2)
  1. REVLIMID [Suspect]
     Active Substance: LENALIDOMIDE
     Indication: Plasma cell myeloma
     Route: 048
  2. NINLARO [Concomitant]
     Active Substance: IXAZOMIB CITRATE
     Indication: Product used for unknown indication
     Route: 048

REACTIONS (1)
  - Decubitus ulcer [Recovering/Resolving]
